FAERS Safety Report 14869748 (Version 1)
Quarter: 2018Q2

REPORT INFORMATION
  Report Type: Spontaneous
  Country: US (occurrence: US)
  Receive Date: 20180423
  Receipt Date: 20180423
  Transmission Date: 20180711
  Serious: No
  Sender: FDA-Public Use
  Company Number: None

PATIENT
  Age: 55 Year
  Sex: Female

DRUGS (1)
  1. IBRANCE [Suspect]
     Active Substance: PALBOCICLIB

REACTIONS (12)
  - Constipation [None]
  - Inappropriate schedule of drug administration [None]
  - Tooth fracture [None]
  - Muscular weakness [None]
  - Hyperhidrosis [None]
  - Eructation [None]
  - Red blood cell count decreased [None]
  - Hot flush [None]
  - Diarrhoea [None]
  - White blood cell count decreased [None]
  - Myalgia [None]
  - Paraesthesia [None]

NARRATIVE: CASE EVENT DATE: 20180423
